FAERS Safety Report 11446720 (Version 1)
Quarter: 2015Q3

REPORT INFORMATION
  Report Type: Spontaneous
  Country: US (occurrence: US)
  Receive Date: 20150831
  Receipt Date: 20150831
  Transmission Date: 20151125
  Serious: Yes (Hospitalization)
  Sender: FDA-Public Use
  Company Number: US-ELI_LILLY_AND_COMPANY-US200811001301

PATIENT
  Age: 49 Year
  Sex: Female

DRUGS (3)
  1. CLONOPIN [Concomitant]
     Active Substance: CLONAZEPAM
  2. WELLBUTRIN [Concomitant]
     Active Substance: BUPROPION HYDROCHLORIDE
     Indication: DEPRESSION
  3. CYMBALTA [Suspect]
     Active Substance: DULOXETINE HYDROCHLORIDE
     Indication: DEPRESSION
     Dosage: 120 MG, DAILY (1/D)
     Dates: start: 200807, end: 20081030

REACTIONS (5)
  - Suicidal ideation [Not Recovered/Not Resolved]
  - Feeling cold [Not Recovered/Not Resolved]
  - Affect lability [Not Recovered/Not Resolved]
  - Rash [Not Recovered/Not Resolved]
  - Drug ineffective [Recovered/Resolved]

NARRATIVE: CASE EVENT DATE: 200807
